FAERS Safety Report 8515575-0 (Version None)
Quarter: 2012Q3

REPORT INFORMATION
  Report Type: 
  Country: None (occurrence: None)
  Receive Date: 20120717
  Receipt Date: 20120709
  Transmission Date: 20120928
  Serious: Yes (Other)
  Sender: FDA-Public Use
  Company Number: PHHY2012AU059021

PATIENT
  Sex: Female

DRUGS (1)
  1. ZOLEDRONOC ACID [Suspect]
     Dosage: 5 MG, UNK
     Route: 042
     Dates: start: 20120705

REACTIONS (10)
  - CHEST DISCOMFORT [None]
  - MUSCLE SPASMS [None]
  - CHILLS [None]
  - VEIN DISORDER [None]
  - DIZZINESS [None]
  - BODY TEMPERATURE INCREASED [None]
  - HEADACHE [None]
  - HYPERHIDROSIS [None]
  - VOMITING [None]
  - MALAISE [None]
